FAERS Safety Report 19947590 (Version 1)
Quarter: 2021Q4

REPORT INFORMATION
  Report Type: Spontaneous
  Country: NL (occurrence: NL)
  Receive Date: 20211012
  Receipt Date: 20211012
  Transmission Date: 20220303
  Serious: Yes (Other)
  Sender: FDA-Public Use
  Company Number: None

PATIENT
  Age: 59 Year
  Sex: Male
  Weight: 128 kg

DRUGS (10)
  1. CITALOPRAM [Suspect]
     Active Substance: CITALOPRAM HYDROBROMIDE
     Indication: Depression
     Dosage: 15 MILLIGRAM, QD (1 X PER DAY 1.5)
     Dates: start: 20210325
  2. LACTULOSE [Concomitant]
     Active Substance: LACTULOSE
     Dosage: 670 MILLIGRAM PER MILLILITRE, STROOP
  3. MORFINE HCL [Concomitant]
     Dosage: 10 MILLIGRAM (TABLET, 10 MG (MILLIGRAM))
  4. PANTOPRAZOLE [Concomitant]
     Active Substance: PANTOPRAZOLE
     Dosage: 40 MILLIGRAM (MAAGSAPRESISTENTE TABLET, 40 MG (MILLIGRAM) )
  5. METOPROLOL [Concomitant]
     Active Substance: METOPROLOL
     Dosage: 25 MILLIGRAM (TABLET MET GEREGULEERDE AFGIFTE, 25 MG (MILLIGRAM))
  6. ROSUVASTATIN [Concomitant]
     Active Substance: ROSUVASTATIN
     Dosage: 40 MILLIGRAM (TABLET, 40 MG (MILLIGRAM))
  7. PERINDOPRIL ERBUMINE [Concomitant]
     Active Substance: PERINDOPRIL ERBUMINE
     Dosage: 2 MILLIGRAM (TABLET, 2 MG (MILLIGRAM))
  8. ASPIRIN [Concomitant]
     Active Substance: ASPIRIN
     Dosage: 80 MILLIGRAM (TABLET, 80 MG (MILLIGRAM))
  9. TAPENTADOL [Concomitant]
     Active Substance: TAPENTADOL
     Dosage: 100 MILLIGRAM (TABLET MET GEREGULEERDE AFGIFTE, 100 MG (MILLIGRAM))
  10. EZETIMIBE [Concomitant]
     Active Substance: EZETIMIBE
     Dosage: 10 MILLIGRAM (TABLET, 10 MG (MILLIGRAM))

REACTIONS (1)
  - Neuralgia [Not Recovered/Not Resolved]

NARRATIVE: CASE EVENT DATE: 20210325
